FAERS Safety Report 12881560 (Version 2)
Quarter: 2017Q2

REPORT INFORMATION
  Report Type: Spontaneous
  Country: US (occurrence: US)
  Receive Date: 20161025
  Receipt Date: 20170407
  Transmission Date: 20170830
  Serious: Yes (Other)
  Sender: FDA-Public Use
  Company Number: US-JNJFOC-20161014868

PATIENT
  Sex: Male

DRUGS (4)
  1. RISPERDAL [Suspect]
     Active Substance: RISPERIDONE
     Indication: PSYCHOMOTOR HYPERACTIVITY
     Dosage: VARYING DOSES OF 1 MG AND 2 MG
     Route: 048
     Dates: start: 200409, end: 200602
  2. RISPERDAL [Suspect]
     Active Substance: RISPERIDONE
     Indication: SLEEP DISORDER
     Dosage: VARYING DOSES OF 1 MG AND 2 MG
     Route: 048
     Dates: start: 200409, end: 200602
  3. RISPERDAL [Suspect]
     Active Substance: RISPERIDONE
     Indication: ATTENTION DEFICIT/HYPERACTIVITY DISORDER
     Dosage: VARYING DOSES OF 1 MG AND 2 MG
     Route: 048
     Dates: start: 200409, end: 200602
  4. RISPERDAL M-TAB [Suspect]
     Active Substance: RISPERIDONE
     Indication: PRODUCT USED FOR UNKNOWN INDICATION
     Route: 048

REACTIONS (3)
  - Off label use [Unknown]
  - Product use in unapproved indication [Unknown]
  - Gynaecomastia [Recovered/Resolved]

NARRATIVE: CASE EVENT DATE: 2004
